FAERS Safety Report 6920251-1 (Version None)
Quarter: 2010Q3

REPORT INFORMATION
  Report Type: 
  Country: None (occurrence: None)
  Receive Date: 20100809
  Receipt Date: 20091118
  Transmission Date: 20110219
  Serious: Yes (Hospitalization, Disabling, Other)
  Sender: FDA-Public Use
  Company Number: 2009SP037080

PATIENT
  Age: 43 Year
  Sex: Female
  Weight: 72.5755 kg

DRUGS (4)
  1. NUVARING [Suspect]
     Indication: MENORRHAGIA
     Dates: start: 20061024, end: 20071019
  2. NUVARING [Suspect]
     Indication: MENSTRUAL CYCLE MANAGEMENT
     Dates: start: 20061024, end: 20071019
  3. CENTRUM VITAMINS [Concomitant]
  4. ASPIRIN [Concomitant]

REACTIONS (24)
  - ANIMAL BITE [None]
  - ANTIPHOSPHOLIPID SYNDROME [None]
  - ARTHRALGIA [None]
  - ATRIAL FIBRILLATION [None]
  - AUTOIMMUNE DISORDER [None]
  - BACK PAIN [None]
  - BRADYCARDIA [None]
  - BREAST PAIN [None]
  - DEEP VEIN THROMBOSIS [None]
  - DERMATITIS ALLERGIC [None]
  - DIZZINESS [None]
  - HYPERCOAGULATION [None]
  - HYPERHIDROSIS [None]
  - HYPOAESTHESIA [None]
  - INFLAMMATION [None]
  - MULTIPLE INJURIES [None]
  - PALPITATIONS [None]
  - PNEUMONIA [None]
  - PULMONARY EMBOLISM [None]
  - RESUSCITATION [None]
  - RETINAL DISORDER [None]
  - SARCOIDOSIS [None]
  - SYNOVIAL CYST [None]
  - SYSTEMIC LUPUS ERYTHEMATOSUS [None]
